FAERS Safety Report 14846411 (Version 1)
Quarter: 2018Q2

REPORT INFORMATION
  Report Type: Spontaneous
  Country: US (occurrence: US)
  Receive Date: 20180504
  Receipt Date: 20180504
  Transmission Date: 20180711
  Serious: No
  Sender: FDA-Public Use
  Company Number: US-TEVA-2018-US-889588

PATIENT
  Sex: Female

DRUGS (1)
  1. CRYSELLE [Suspect]
     Active Substance: ETHINYL ESTRADIOL\NORGESTREL
     Dates: start: 201710, end: 201804

REACTIONS (1)
  - Tremor [Not Recovered/Not Resolved]
